FAERS Safety Report 23889838 (Version 1)
Quarter: 2024Q2

REPORT INFORMATION
  Report Type: Spontaneous
  Country: US (occurrence: None)
  Receive Date: 20240523
  Receipt Date: 20240523
  Transmission Date: 20240716
  Serious: No
  Sender: FDA-Public Use
  Company Number: None

PATIENT
  Age: 32 Year
  Sex: Male

DRUGS (1)
  1. CABENUVA [Suspect]
     Active Substance: CABOTEGRAVIR\RILPIVIRINE
     Indication: HIV infection
     Dosage: OTHER QUANTITY : 600MG/900MG;?OTHER FREQUENCY : EVERY 2 MONTHS;?
     Route: 030

REACTIONS (2)
  - Product dose omission in error [None]
  - Therapy interrupted [None]

NARRATIVE: CASE EVENT DATE: 20240404
